FAERS Safety Report 13905998 (Version 1)
Quarter: 2017Q3

REPORT INFORMATION
  Report Type: Spontaneous
  Country: US (occurrence: US)
  Receive Date: 20170825
  Receipt Date: 20170825
  Transmission Date: 20171127
  Serious: Yes (Disabling)
  Sender: FDA-Public Use
  Company Number: None

PATIENT
  Sex: Male
  Weight: 94.5 kg

DRUGS (2)
  1. BACLOFEN. [Concomitant]
     Active Substance: BACLOFEN
  2. PROPECIA [Suspect]
     Active Substance: FINASTERIDE
     Indication: ALOPECIA
     Route: 048
     Dates: start: 19980201, end: 20020201

REACTIONS (6)
  - Perineal pain [None]
  - Sleep disorder [None]
  - Prostatitis [None]
  - Painful erection [None]
  - Middle insomnia [None]
  - Fatigue [None]

NARRATIVE: CASE EVENT DATE: 20070601
